FAERS Safety Report 22004960 (Version 1)
Quarter: 2023Q1

REPORT INFORMATION
  Report Type: Spontaneous
  Country: DK (occurrence: None)
  Receive Date: 20230217
  Receipt Date: 20230217
  Transmission Date: 20230417
  Serious: Yes (Life-Threatening)
  Sender: FDA-Public Use
  Company Number: 2023A038174

PATIENT
  Age: 54 Year
  Sex: Female
  Weight: 62 kg

DRUGS (4)
  1. SAPHNELO [Suspect]
     Active Substance: ANIFROLUMAB-FNIA
     Indication: Systemic lupus erythematosus
     Dosage: STRENGTH: 300 MG
     Route: 042
     Dates: start: 20220816
  2. CALCIUM OG D-VITAMIN [Concomitant]
     Indication: Vitamin D deficiency
     Dates: start: 20220202
  3. FOLINSYRE [Concomitant]
     Indication: Folate deficiency
     Dates: start: 20220202
  4. ASCORBIC ACID [Concomitant]
     Active Substance: ASCORBIC ACID
     Indication: Vitamin C deficiency
     Dates: start: 20220202

REACTIONS (1)
  - Cerebrovascular accident [Unknown]

NARRATIVE: CASE EVENT DATE: 20230114
